FAERS Safety Report 5664495-8 (Version None)
Quarter: 2008Q1

REPORT INFORMATION
  Report Type: 
  Country: None (occurrence: None)
  Receive Date: 20080314
  Receipt Date: 20080307
  Transmission Date: 20080703
  Serious: Yes (Other)
  Sender: FDA-Public Use
  Company Number: B0510110A

PATIENT
  Age: 12 Year
  Sex: Female

DRUGS (8)
  1. RELENZA [Suspect]
     Indication: INFLUENZA
     Route: 055
     Dates: start: 20080126, end: 20080129
  2. DASEN [Concomitant]
     Indication: INFLUENZA
     Dosage: 10MG THREE TIMES PER DAY
     Route: 048
     Dates: start: 20080126, end: 20080130
  3. EBASTEL [Concomitant]
     Dosage: 10MG PER DAY
     Route: 048
     Dates: start: 20080126
  4. POLARAMINE [Concomitant]
     Dosage: 2MG THREE TIMES PER DAY
     Route: 048
     Dates: start: 20080126
  5. ASVERIN [Concomitant]
     Indication: INFLUENZA
     Dosage: .6G TWICE PER DAY
     Route: 048
     Dates: start: 20080126, end: 20080130
  6. HUSCODE [Concomitant]
     Indication: INFLUENZA
     Dosage: 1.5G TWICE PER DAY
     Route: 048
     Dates: start: 20080126, end: 20080130
  7. MEPTIN [Concomitant]
     Indication: INFLUENZA
     Dosage: .5G TWICE PER DAY
     Route: 048
     Dates: start: 20080126, end: 20080130
  8. MUCOSOLVAN [Concomitant]
     Indication: INFLUENZA
     Dosage: 2.2G TWICE PER DAY
     Route: 048
     Dates: start: 20080126, end: 20080130

REACTIONS (3)
  - ABNORMAL BEHAVIOUR [None]
  - HALLUCINATION, VISUAL [None]
  - PYREXIA [None]
